FAERS Safety Report 20428515 (Version 4)
Quarter: 2022Q3

REPORT INFORMATION
  Report Type: Spontaneous
  Country: US (occurrence: US)
  Receive Date: 20220204
  Receipt Date: 20220906
  Transmission Date: 20221027
  Serious: Yes (Other)
  Sender: FDA-Public Use
  Company Number: US-AMGEN-USASP2022017441

PATIENT

DRUGS (1)
  1. FILGRASTIM [Suspect]
     Active Substance: FILGRASTIM
     Indication: Haematopoietic stem cell mobilisation
     Dosage: UNK
     Route: 065

REACTIONS (6)
  - Tumour haemorrhage [Unknown]
  - Lymphopenia [Unknown]
  - Cytokine release syndrome [Recovered/Resolved]
  - Oesophageal carcinoma [Unknown]
  - Oesophageal haemorrhage [Unknown]
  - Adverse event [Unknown]
